FAERS Safety Report 21340679 (Version 3)
Quarter: 2022Q4

REPORT INFORMATION
  Report Type: Report from Study
  Country: JP (occurrence: JP)
  Receive Date: 20220916
  Receipt Date: 20221215
  Transmission Date: 20230113
  Serious: Yes (Other)
  Sender: FDA-Public Use
  Company Number: JP-TAKEDA-2022TJP072862

PATIENT
  Age: 14 Year
  Sex: Female

DRUGS (12)
  1. TEDUGLUTIDE [Suspect]
     Active Substance: TEDUGLUTIDE
     Indication: Short-bowel syndrome
     Dosage: UNK MILLIGRAM, QD
     Route: 058
     Dates: start: 20220407, end: 20220417
  2. TEDUGLUTIDE [Suspect]
     Active Substance: TEDUGLUTIDE
     Indication: Short-bowel syndrome
     Dosage: UNK MILLIGRAM, QD
     Route: 058
     Dates: start: 20220407, end: 20220417
  3. TEDUGLUTIDE [Suspect]
     Active Substance: TEDUGLUTIDE
     Indication: Short-bowel syndrome
     Dosage: UNK MILLIGRAM, QD
     Route: 058
     Dates: start: 20220407, end: 20220417
  4. TEDUGLUTIDE [Suspect]
     Active Substance: TEDUGLUTIDE
     Indication: Short-bowel syndrome
     Dosage: UNK MILLIGRAM, QD
     Route: 058
     Dates: start: 20220407, end: 20220417
  5. TEDUGLUTIDE [Suspect]
     Active Substance: TEDUGLUTIDE
     Dosage: 1.75 MILLIGRAM, QD
     Route: 058
     Dates: start: 20220818, end: 20220831
  6. TEDUGLUTIDE [Suspect]
     Active Substance: TEDUGLUTIDE
     Dosage: 1.75 MILLIGRAM, QD
     Route: 058
     Dates: start: 20220818, end: 20220831
  7. TEDUGLUTIDE [Suspect]
     Active Substance: TEDUGLUTIDE
     Dosage: 1.75 MILLIGRAM, QD
     Route: 058
     Dates: start: 20220818, end: 20220831
  8. TEDUGLUTIDE [Suspect]
     Active Substance: TEDUGLUTIDE
     Dosage: 1.75 MILLIGRAM, QD
     Route: 058
     Dates: start: 20220818, end: 20220831
  9. TEDUGLUTIDE [Suspect]
     Active Substance: TEDUGLUTIDE
     Dosage: 1.75 MILLIGRAM, QOD
     Route: 058
     Dates: start: 20221005
  10. TEDUGLUTIDE [Suspect]
     Active Substance: TEDUGLUTIDE
     Dosage: 1.75 MILLIGRAM, QOD
     Route: 058
     Dates: start: 20221005
  11. TEDUGLUTIDE [Suspect]
     Active Substance: TEDUGLUTIDE
     Dosage: 1.75 MILLIGRAM, QOD
     Route: 058
     Dates: start: 20221005
  12. TEDUGLUTIDE [Suspect]
     Active Substance: TEDUGLUTIDE
     Dosage: 1.75 MILLIGRAM, QOD
     Route: 058
     Dates: start: 20221005

REACTIONS (2)
  - Stoma obstruction [Unknown]
  - Inappropriate schedule of product administration [Unknown]

NARRATIVE: CASE EVENT DATE: 20220830
